FAERS Safety Report 4986404-7 (Version None)
Quarter: 2006Q2

REPORT INFORMATION
  Report Type: 
  Country: None (occurrence: None)
  Receive Date: 20060428
  Receipt Date: 20051125
  Transmission Date: 20061013
  Serious: Yes (Other)
  Sender: FDA-Public Use
  Company Number: FR-JNJFOC-20060405834

PATIENT
  Age: 54 Year
  Sex: Female

DRUGS (1)
  1. ZALDIAR [Suspect]
     Indication: BACK PAIN
     Route: 048

REACTIONS (10)
  - DISTURBANCE IN ATTENTION [None]
  - DRY MOUTH [None]
  - GENERALISED OEDEMA [None]
  - HEADACHE [None]
  - NAUSEA [None]
  - PRURITUS [None]
  - SOMNOLENCE [None]
  - URINARY RETENTION [None]
  - URTICARIA [None]
  - VOMITING [None]
